FAERS Safety Report 7546486-5 (Version None)
Quarter: 2011Q2

REPORT INFORMATION
  Report Type: 
  Country: None (occurrence: None)
  Receive Date: 20110614
  Receipt Date: 20110610
  Transmission Date: 20111010
  Serious: Yes (Death, Other)
  Sender: FDA-Public Use
  Company Number: GB-PFIZER INC-2011128258

PATIENT
  Age: 29 Year
  Sex: Female

DRUGS (4)
  1. MISOPROSTOL [Suspect]
     Indication: ABORTION INDUCED
     Dosage: 800 UG, TOTAL DOSE
     Route: 067
     Dates: start: 20080418, end: 20080418
  2. MISOPROSTOL [Suspect]
     Indication: OFF LABEL USE
  3. CODEINE [Concomitant]
     Indication: ANALGESIC THERAPY
  4. MIFEPRISTONE (MIFEPREX) [Suspect]
     Indication: ABORTION INDUCED
     Dosage: 200 MG, TOTAL DOSE
     Dates: start: 20080417, end: 20080417

REACTIONS (5)
  - INAPPROPRIATE SCHEDULE OF DRUG ADMINISTRATION [None]
  - CARDIAC ARREST [None]
  - INCORRECT DOSE ADMINISTERED [None]
  - ASTHMA [None]
  - INCORRECT ROUTE OF DRUG ADMINISTRATION [None]
